FAERS Safety Report 5244897-4 (Version None)
Quarter: 2007Q1

REPORT INFORMATION
  Report Type: 
  Country: None (occurrence: None)
  Receive Date: 20061201
  Receipt Date: 20060810
  Transmission Date: 20070707
  Serious: No
  Sender: FDA-Public Use
  Company Number: 2006PV019209

PATIENT
  Age: 59 Year
  Sex: Female
  Weight: 68.0396 kg

DRUGS (6)
  1. BYETTA [Suspect]
     Indication: DIABETES MELLITUS NON-INSULIN-DEPENDENT
     Dosage: 5 MCG;BID;SC
     Route: 058
     Dates: start: 20060717
  2. AMARYL [Concomitant]
  3. GLUCOPHAGE [Concomitant]
  4. PRANDIN [Concomitant]
  5. GLYCERIN [Concomitant]
  6. NEXIUM [Concomitant]

REACTIONS (4)
  - CONSTIPATION [None]
  - EARLY SATIETY [None]
  - INJECTION SITE HAEMORRHAGE [None]
  - INJECTION SITE PAIN [None]
